FAERS Safety Report 6386393-7 (Version None)
Quarter: 2009Q3

REPORT INFORMATION
  Report Type: 
  Country: None (occurrence: None)
  Receive Date: 20090930
  Receipt Date: 20090930
  Transmission Date: 20100115
  Serious: Yes (Hospitalization, Other)
  Sender: FDA-Public Use
  Company Number: None

PATIENT
  Age: 52 Year
  Sex: Female
  Weight: 69.4003 kg

DRUGS (2)
  1. CLINDAMYACIN MERCK [Suspect]
     Indication: CLOSTRIDIUM DIFFICILE COLITIS
     Dosage: 150MG EVERY 6 HRS PO
     Route: 048
     Dates: start: 20090819, end: 20090828
  2. . [Concomitant]

REACTIONS (6)
  - CLOSTRIDIAL INFECTION [None]
  - DEHYDRATION [None]
  - DIARRHOEA [None]
  - DRUG INEFFECTIVE [None]
  - IMPAIRED WORK ABILITY [None]
  - TOOTH ABSCESS [None]
